FAERS Safety Report 17491273 (Version 2)
Quarter: 2020Q1

REPORT INFORMATION
  Report Type: Spontaneous
  Country: US (occurrence: US)
  Receive Date: 20200303
  Receipt Date: 20200316
  Transmission Date: 20200409
  Serious: Yes (Other)
  Sender: FDA-Public Use
  Company Number: US-SA-2020SA052019

PATIENT

DRUGS (4)
  1. DIGOXIN. [Suspect]
     Active Substance: DIGOXIN
     Indication: ARRHYTHMIA SUPRAVENTRICULAR
  2. DIGOXIN. [Suspect]
     Active Substance: DIGOXIN
     Indication: ARRHYTHMIA SUPRAVENTRICULAR
     Route: 065
  3. MULTAQ [Suspect]
     Active Substance: DRONEDARONE
     Indication: ATRIAL FLUTTER
     Dosage: UNK
     Route: 065
  4. MULTAQ [Suspect]
     Active Substance: DRONEDARONE
     Indication: ARRHYTHMIA SUPRAVENTRICULAR

REACTIONS (3)
  - Atrial fibrillation [Unknown]
  - Drug ineffective [Unknown]
  - Arrhythmia [Unknown]
